FAERS Safety Report 8131178-4 (Version None)
Quarter: 2012Q1

REPORT INFORMATION
  Report Type: 
  Country: None (occurrence: None)
  Receive Date: 20120213
  Receipt Date: 20120202
  Transmission Date: 20120608
  Serious: Yes (Other)
  Sender: FDA-Public Use
  Company Number: CA-JNJFOC-20120201862

PATIENT
  Sex: Female
  Weight: 124.8 kg

DRUGS (7)
  1. REMICADE [Suspect]
     Indication: CROHN'S DISEASE
     Route: 042
     Dates: start: 20120202
  2. REMICADE [Suspect]
     Route: 042
     Dates: start: 20090501
  3. CLINDAMYCIN [Concomitant]
     Route: 065
  4. FERROUS SULFATE TAB [Concomitant]
     Route: 065
  5. RAMIPRIL [Concomitant]
     Route: 065
  6. IMURAN [Concomitant]
     Route: 065
  7. METFORMIN HCL [Concomitant]
     Route: 065

REACTIONS (2)
  - WOUND COMPLICATION [None]
  - SKIN ULCER [None]
